FAERS Safety Report 9868857 (Version 2)
Quarter: 2014Q2

REPORT INFORMATION
  Report Type: Spontaneous
  Country: US (occurrence: US)
  Receive Date: 20140204
  Receipt Date: 20140512
  Transmission Date: 20141212
  Serious: Yes (Hospitalization, Other)
  Sender: FDA-Public Use
  Company Number: US-GILEAD-2014-0093687

PATIENT
  Age: 59 Year
  Sex: Male

DRUGS (26)
  1. LETAIRIS [Suspect]
     Indication: COR PULMONALE CHRONIC
     Dosage: 10 MG, UNK
     Route: 065
     Dates: start: 20130208
  2. LETAIRIS [Suspect]
     Indication: PULMONARY HYPERTENSION
  3. CLOPIDOGREL [Concomitant]
  4. LORATADINE [Concomitant]
  5. TACROLIMUS [Concomitant]
  6. MYFORTIC [Concomitant]
  7. ALLOPURINOL [Concomitant]
  8. GLIPIZIDE [Concomitant]
  9. KLOR-CON [Concomitant]
  10. PATADAY [Concomitant]
  11. DIOVAN [Concomitant]
  12. GABAPENTIN [Concomitant]
  13. CLOTRIMAZOLE [Concomitant]
  14. DIPHENOXYLATE/ATROPINE [Concomitant]
  15. ZOLPIDEM [Concomitant]
  16. ADCIRCA [Concomitant]
  17. LOVASTATIN [Concomitant]
  18. COLCRYS [Concomitant]
  19. PREDNISONE [Concomitant]
  20. METOPROLOL [Concomitant]
  21. NITROSTAT [Concomitant]
  22. ZYMAXID [Concomitant]
  23. CIALIS [Concomitant]
  24. FUROSEMIDE [Concomitant]
  25. WARFARIN [Concomitant]
  26. FEXOFENADINE [Concomitant]

REACTIONS (5)
  - Meningitis [Recovering/Resolving]
  - Coma [Recovered/Resolved]
  - Pneumonia [Recovering/Resolving]
  - Nausea [Recovering/Resolving]
  - Headache [Recovering/Resolving]
